FAERS Safety Report 7958835-4 (Version None)
Quarter: 2011Q4

REPORT INFORMATION
  Report Type: 
  Country: None (occurrence: None)
  Receive Date: 20111206
  Receipt Date: 20111128
  Transmission Date: 20120403
  Serious: Yes (Other)
  Sender: FDA-Public Use
  Company Number: US-US-EMD SERONO, INC.-7096693

PATIENT
  Sex: Male
  Weight: 43 kg

DRUGS (4)
  1. ADVAIR DISKUS 100/50 [Concomitant]
     Indication: ASTHMA
  2. XOPENEX [Concomitant]
     Indication: ASTHMA
  3. ASTELIN [Concomitant]
     Indication: ASTHMA
  4. SAIZEN [Suspect]
     Indication: GROWTH HORMONE DEFICIENCY
     Route: 058
     Dates: start: 20110917, end: 20111115

REACTIONS (1)
  - PANCREATITIS ACUTE [None]
